FAERS Safety Report 9358598 (Version 1)
Quarter: 2013Q2

REPORT INFORMATION
  Report Type: Spontaneous
  Country: NL (occurrence: NL)
  Receive Date: 20130620
  Receipt Date: 20130620
  Transmission Date: 20140414
  Serious: Yes (Hospitalization)
  Sender: FDA-Public Use
  Company Number: PHHY2013NL061450

PATIENT
  Age: 54 Year
  Sex: Male

DRUGS (7)
  1. ITRACONAZOLE SANDOZ [Suspect]
     Dates: start: 201301
  2. PREDNISOLON [Concomitant]
  3. CELLCEPT [Concomitant]
     Dosage: 250 MG, TID
     Dates: start: 199901
  4. NEORAL [Concomitant]
     Dates: start: 199901
  5. CHOLECALCIFEROL [Concomitant]
  6. CALCIUM CARBONATE [Concomitant]
  7. MAGNESIUM HYDROXIDE [Concomitant]

REACTIONS (4)
  - Therapeutic response unexpected with drug substitution [Unknown]
  - Arthralgia [Unknown]
  - Oedema [Unknown]
  - Pain in extremity [None]
